FAERS Safety Report 8823435 (Version 1)
Quarter: 2012Q4

REPORT INFORMATION
  Report Type: 
  Country: US (occurrence: US)
  Receive Date: 20121003
  Receipt Date: 20121003
  Transmission Date: 20130627
  Serious: Yes (Other)
  Sender: FDA-Public Use
  Company Number: US-009507513-1210USA000622

PATIENT
  Sex: Female

DRUGS (11)
  1. JANUVIA [Suspect]
     Route: 048
  2. FOSAMAX [Suspect]
     Route: 048
  3. VYTORIN [Suspect]
     Route: 048
  4. ENALAPRIL MALEATE [Suspect]
  5. THORAZINE [Suspect]
  6. METFORMIN [Suspect]
  7. GLUCOTROL [Suspect]
     Dosage: 5 mg, UNK
  8. VALTURNA [Suspect]
  9. DARVOCET-N [Suspect]
  10. COREG [Suspect]
     Dosage: 20 mg, UNK
  11. CARBAMAZEPINE [Suspect]

REACTIONS (20)
  - Gout [Unknown]
  - Mental disability [Unknown]
  - Blood pressure increased [Unknown]
  - Hyperhidrosis [Unknown]
  - Varicose vein [Unknown]
  - Fall [Unknown]
  - Physical disability [Unknown]
  - Vascular injury [Unknown]
  - Dizziness [Unknown]
  - Reactive attachment disorder of infancy or early childhood [Unknown]
  - Nausea [Unknown]
  - Bladder disorder [Unknown]
  - Blood glucose increased [Unknown]
  - Feeling abnormal [Unknown]
  - Skin discolouration [Unknown]
  - Spinal fracture [Unknown]
  - Bone disorder [Unknown]
  - Dementia [Unknown]
  - Inability to crawl [Unknown]
  - Weight increased [Unknown]
